FAERS Safety Report 4338385-7 (Version None)
Quarter: 2004Q2

REPORT INFORMATION
  Report Type: 
  Country: None (occurrence: None)
  Receive Date: 20040407
  Receipt Date: 20040326
  Transmission Date: 20050107
  Serious: No
  Sender: FDA-Public Use
  Company Number: 2004AP01532

PATIENT
  Age: 65 Year
  Sex: Male
  Weight: 67 kg

DRUGS (9)
  1. ANAPEINE [Suspect]
     Indication: EPIDURAL ANAESTHESIA
     Dosage: 4 ML/HR ED
     Dates: start: 20040227, end: 20040227
  2. ANAPEINE [Suspect]
     Indication: EPIDURAL ANAESTHESIA
     Dosage: 6 ML/HR ED
     Dates: start: 20040227, end: 20040227
  3. ANAPEINE [Suspect]
     Indication: EPIDURAL ANAESTHESIA
     Dosage: 4 ML/HR ED
     Dates: start: 20040228, end: 20040228
  4. ANAPEINE [Suspect]
     Indication: EPIDURAL ANAESTHESIA
     Dosage: 2 ML/HR ED
     Dates: start: 20040228, end: 20040228
  5. ANAPEINE [Suspect]
     Indication: EPIDURAL ANAESTHESIA
     Dosage: 4 ML/HR ED
     Dates: start: 20040228, end: 20040228
  6. ANAPEINE [Suspect]
     Indication: EPIDURAL ANAESTHESIA
     Dosage: 6 ML/HR ED
     Dates: start: 20040228, end: 20040228
  7. PENTAGIN [Concomitant]
  8. ATARAX [Concomitant]
  9. CARBOCAIN [Concomitant]

REACTIONS (8)
  - ANAESTHETIC COMPLICATION [None]
  - BLOOD GLUCOSE INCREASED [None]
  - BLOOD PRESSURE DECREASED [None]
  - DEPRESSED LEVEL OF CONSCIOUSNESS [None]
  - DIPLEGIA [None]
  - DRUG INEFFECTIVE [None]
  - HYPOPNOEA [None]
  - MEDICATION ERROR [None]
